FAERS Safety Report 5563620-7 (Version None)
Quarter: 2007Q4

REPORT INFORMATION
  Report Type: 
  Country: None (occurrence: None)
  Receive Date: 20071217
  Receipt Date: 20071210
  Transmission Date: 20080405
  Serious: Yes (Other)
  Sender: FDA-Public Use
  Company Number: US-JNJFOC-20071107153

PATIENT
  Sex: Male
  Weight: 89.36 kg

DRUGS (3)
  1. LEVAQUIN [Suspect]
     Indication: PHARYNGITIS
     Route: 048
  2. VIGAMOX [Suspect]
     Indication: CATARACT OPERATION
     Route: 047
  3. PREDNISONE [Concomitant]
     Indication: PHARYNGITIS
     Route: 048

REACTIONS (4)
  - JOINT SWELLING [None]
  - LOSS OF CONSCIOUSNESS [None]
  - MUSCULOSKELETAL STIFFNESS [None]
  - PAIN IN EXTREMITY [None]
